FAERS Safety Report 16393505 (Version 1)
Quarter: 2019Q2

REPORT INFORMATION
  Report Type: Spontaneous
  Country: US (occurrence: US)
  Receive Date: 20190530
  Receipt Date: 20190530
  Transmission Date: 20190711
  Serious: Yes (Hospitalization)
  Sender: FDA-Public Use
  Company Number: None

PATIENT
  Age: 38 Year
  Sex: Male
  Weight: 69.85 kg

DRUGS (1)
  1. MIFEPRISTONE 1200MG/D [Suspect]
     Active Substance: MIFEPRISTONE
     Indication: ALCOHOL USE DISORDER
     Route: 048
     Dates: start: 20190328, end: 20190404

REACTIONS (9)
  - Fall [None]
  - Loss of consciousness [None]
  - Accident [None]
  - Balance disorder [None]
  - Photopsia [None]
  - Haematochezia [None]
  - Head injury [None]
  - Face injury [None]
  - Dizziness [None]

NARRATIVE: CASE EVENT DATE: 20190525
